FAERS Safety Report 5454034-9 (Version None)
Quarter: 2007Q3

REPORT INFORMATION
  Report Type: 
  Country: None (occurrence: None)
  Receive Date: 20070917
  Receipt Date: 20070531
  Transmission Date: 20080115
  Serious: Yes (Other)
  Sender: FDA-Public Use
  Company Number: US-ASTRAZENECA-2006UW06083

PATIENT
  Sex: Male
  Weight: 177.3 kg

DRUGS (6)
  1. SEROQUEL [Suspect]
     Indication: INSOMNIA
     Dosage: 25-300MG
     Route: 048
     Dates: start: 20050706, end: 20061001
  2. ABILIFY [Concomitant]
  3. GEODON [Concomitant]
  4. ELAVIL [Concomitant]
  5. REMERON [Concomitant]
  6. ATIVAN [Concomitant]

REACTIONS (2)
  - DIABETES MELLITUS [None]
  - KETOACIDOSIS [None]
